FAERS Safety Report 7399408-4 (Version None)
Quarter: 2011Q1

REPORT INFORMATION
  Report Type: 
  Country: None (occurrence: None)
  Receive Date: 20110329
  Receipt Date: 20110318
  Transmission Date: 20110831
  Serious: Yes (Other)
  Sender: FDA-Public Use
  Company Number: 2011SP012657

PATIENT
  Age: 40 Year
  Sex: Female

DRUGS (3)
  1. SEROPLEX [Concomitant]
  2. MIRTAZAPINE [Suspect]
     Indication: INSOMNIA
     Dosage: 15 MG; QPM;
  3. MIRTAZAPINE [Suspect]
     Indication: DEPRESSION
     Dosage: 15 MG; QPM;

REACTIONS (4)
  - MYALGIA [None]
  - SEROTONIN SYNDROME [None]
  - FIBROMYALGIA [None]
  - MUSCLE RIGIDITY [None]
